FAERS Safety Report 18267768 (Version 1)
Quarter: 2020Q3

REPORT INFORMATION
  Report Type: Report from Study
  Country: CA (occurrence: CA)
  Receive Date: 20200915
  Receipt Date: 20200915
  Transmission Date: 20201103
  Serious: Yes (Other)
  Sender: FDA-Public Use
  Company Number: CA-JNJFOC-20200902258

PATIENT
  Age: 72 Year
  Sex: Male

DRUGS (2)
  1. REMICADE [Suspect]
     Active Substance: INFLIXIMAB
     Indication: COLITIS ULCERATIVE
     Route: 042
  2. REACTINE                           /00884302/ [Concomitant]
     Active Substance: CETIRIZINE HYDROCHLORIDE
     Indication: PRODUCT USED FOR UNKNOWN INDICATION
     Route: 065

REACTIONS (12)
  - Hyperhidrosis [Unknown]
  - Heart rate decreased [Unknown]
  - Hypertension [Unknown]
  - Staring [Unknown]
  - Blood pressure decreased [Unknown]
  - Off label use [Unknown]
  - Lethargy [Unknown]
  - Infusion related reaction [Unknown]
  - Urinary incontinence [Unknown]
  - Product use issue [Unknown]
  - Eye movement disorder [Unknown]
  - Pallor [Unknown]

NARRATIVE: CASE EVENT DATE: 20200831
